FAERS Safety Report 6556140-4 (Version None)
Quarter: 2010Q1

REPORT INFORMATION
  Report Type: 
  Country: None (occurrence: None)
  Receive Date: 20100128
  Receipt Date: 20090526
  Transmission Date: 20100710
  Serious: No
  Sender: FDA-Public Use
  Company Number: US-TEVA-193799USA

PATIENT
  Sex: Female

DRUGS (4)
  1. COPAXONE [Suspect]
     Indication: MULTIPLE SCLEROSIS
     Route: 058
  2. IBUPROFEN [Concomitant]
     Dosage: PRN
  3. DIPHENHYDRAMINE HYDROCHLORIDE [Concomitant]
     Dosage: PRN
  4. HYDROCORTISONE CREAM [Concomitant]
     Dosage: PRN

REACTIONS (1)
  - ALOPECIA [None]
